FAERS Safety Report 7462587-4 (Version None)
Quarter: 2011Q2

REPORT INFORMATION
  Report Type: 
  Country: None (occurrence: None)
  Receive Date: 20110506
  Receipt Date: 20110322
  Transmission Date: 20111010
  Serious: Yes (Hospitalization, Other)
  Sender: FDA-Public Use
  Company Number: US-BAYER-201012558NA

PATIENT
  Age: 35 Year
  Sex: Female
  Weight: 74 kg

DRUGS (12)
  1. YAZ [Suspect]
  2. GAS X [Concomitant]
  3. YAZ [Suspect]
     Indication: PREMENSTRUAL SYNDROME
     Dosage: PFS: +#8220;RECEIVED SAMPLES ALMOST THE WHOLE TIME ON YAZ 2007 TO 2009, 3 MONTHS AT A TIME+#8221;
     Dates: start: 20071026, end: 20090716
  4. VITAMIN B COMPLEX CAP [Concomitant]
  5. VITAMIN C [Concomitant]
  6. NEXIUM [Concomitant]
  7. XANAX [Concomitant]
  8. CALCIUM +VIT D [Concomitant]
  9. PROMETHAZINE HYDROCHLORIDE [Concomitant]
  10. NSAID'S [Concomitant]
     Dosage: UNK
     Dates: start: 20080709
  11. YASMIN [Suspect]
  12. DROSPIRENONE AND ETHINYL ESTRADIOL [Suspect]

REACTIONS (3)
  - CHOLELITHIASIS [None]
  - GALLBLADDER INJURY [None]
  - CHOLECYSTITIS CHRONIC [None]
